FAERS Safety Report 11364484 (Version 1)
Quarter: 2015Q3

REPORT INFORMATION
  Report Type: Spontaneous
  Country: US (occurrence: None)
  Receive Date: 20150810
  Receipt Date: 20150810
  Transmission Date: 20151125
  Serious: Yes (Disabling, Other)
  Sender: FDA-Public Use
  Company Number: None

PATIENT
  Age: 43 Year
  Sex: Female
  Weight: 83.92 kg

DRUGS (7)
  1. CLONAZEPAM. [Suspect]
     Active Substance: CLONAZEPAM
     Indication: SLEEP DISORDER
     Dosage: 1
     Route: 048
     Dates: start: 20080102, end: 20150806
  2. ATENOLOL. [Concomitant]
     Active Substance: ATENOLOL
  3. KDUR [Concomitant]
  4. HCTZ [Concomitant]
     Active Substance: HYDROCHLOROTHIAZIDE
  5. LASIX [Concomitant]
     Active Substance: FUROSEMIDE
  6. CLONAZEPAM. [Suspect]
     Active Substance: CLONAZEPAM
     Indication: ANXIETY
     Dosage: 1
     Route: 048
     Dates: start: 20080102, end: 20150806
  7. SIMVASTATIN. [Concomitant]
     Active Substance: SIMVASTATIN

REACTIONS (7)
  - Feeling abnormal [None]
  - Insomnia [None]
  - Irregular breathing [None]
  - Abnormal dreams [None]
  - Nightmare [None]
  - Dyspnoea [None]
  - Respiratory arrest [None]
